FAERS Safety Report 4350127-8 (Version None)
Quarter: 2004Q2

REPORT INFORMATION
  Report Type: 
  Country: None (occurrence: None)
  Receive Date: 20040429
  Receipt Date: 20040304
  Transmission Date: 20050107
  Serious: Yes (Life-Threatening, Hospitalization)
  Sender: FDA-Public Use
  Company Number: US-ROCHE-360924

PATIENT
  Age: 26 Year
  Sex: Female
  Weight: 49.9 kg

DRUGS (2)
  1. KLONOPIN [Suspect]
     Indication: ANXIETY
     Dosage: DOSAGE TAKEN AS REQUIRED (PRN).
     Route: 048
     Dates: start: 20021024
  2. WELLBUTRIN [Suspect]
     Indication: DEPRESSION
     Dosage: DOSAGE REPORTED AS: ^AM^.
     Route: 048
     Dates: start: 20021024, end: 20040115

REACTIONS (2)
  - CONVULSION [None]
  - DRUG INTERACTION [None]
